FAERS Safety Report 5119029-3 (Version None)
Quarter: 2006Q3

REPORT INFORMATION
  Report Type: 
  Country: None (occurrence: None)
  Receive Date: 20060927
  Receipt Date: 20060914
  Transmission Date: 20061208
  Serious: Yes (Hospitalization)
  Sender: FDA-Public Use
  Company Number: US-2006-010284

PATIENT
  Age: 45 Year
  Sex: Female
  Weight: 44 kg

DRUGS (5)
  1. BETASERON [Suspect]
     Indication: RELAPSING-REMITTING MULTIPLE SCLEROSIS
     Dosage: 8 MIU, EVERY 2D, SUBCUTANEOUS
     Route: 058
     Dates: start: 19941031
  2. DITROPAN [Concomitant]
  3. BUMEX [Concomitant]
  4. BACTRIM [Concomitant]
  5. ENALAPRIL MALEATE [Concomitant]

REACTIONS (11)
  - BLOOD SODIUM DECREASED [None]
  - CEREBRAL ATROPHY [None]
  - COMA [None]
  - CONDITION AGGRAVATED [None]
  - CONFUSIONAL STATE [None]
  - CONVULSION [None]
  - HYPOTENSION [None]
  - MULTIPLE SCLEROSIS [None]
  - MYOCLONUS [None]
  - PYREXIA [None]
  - SCAR [None]
